FAERS Safety Report 7108881-8 (Version None)
Quarter: 2010Q4

REPORT INFORMATION
  Report Type: 
  Country: None (occurrence: None)
  Receive Date: 20101117
  Receipt Date: 20101111
  Transmission Date: 20110411
  Serious: Yes (Hospitalization, Other)
  Sender: FDA-Public Use
  Company Number: BR-ABBOTT-10P-020-0663477-00

PATIENT
  Sex: Female
  Weight: 54 kg

DRUGS (5)
  1. HUMIRA [Suspect]
     Indication: CROHN'S DISEASE
     Route: 058
     Dates: start: 20080101, end: 20100830
  2. METRONIDAZOLE [Suspect]
     Indication: ANTIINFLAMMATORY THERAPY
     Route: 048
     Dates: start: 20100629
  3. METRONIDAZOLE [Suspect]
     Dates: end: 20100720
  4. CIPRO [Concomitant]
     Indication: INFLAMMATION
     Route: 048
     Dates: start: 20100629
  5. GESTINOL [Concomitant]
     Indication: CONTRACEPTION
     Route: 048
     Dates: start: 20060101

REACTIONS (12)
  - ABDOMINAL PAIN [None]
  - CROHN'S DISEASE [None]
  - DECREASED APPETITE [None]
  - DRUG INEFFECTIVE [None]
  - EATING DISORDER [None]
  - FISTULA DISCHARGE [None]
  - GASTROINTESTINAL FISTULA [None]
  - INCISION SITE INFECTION [None]
  - INTESTINAL DILATATION [None]
  - PAIN [None]
  - PYREXIA [None]
  - RASH PUSTULAR [None]
